FAERS Safety Report 8009176-0 (Version None)
Quarter: 2011Q4

REPORT INFORMATION
  Report Type: 
  Country: None (occurrence: None)
  Receive Date: 20111227
  Receipt Date: 20111222
  Transmission Date: 20120403
  Serious: No
  Sender: FDA-Public Use
  Company Number: AU-B.I. PHARMACEUTICALS,INC./RIDGEFIELD-2011-EU-01200AU

PATIENT
  Sex: Female
  Weight: 74 kg

DRUGS (6)
  1. METOPROLOL SUCCINATE [Concomitant]
     Indication: HYPERTENSION
     Dosage: 47,5MG ONCE DAILY
  2. DOXAZOSIN MESYLATE [Concomitant]
     Indication: HYPERTENSION
     Dosage: 2 MG
  3. PRADAXA [Suspect]
     Indication: ATRIAL FIBRILLATION
     Dosage: 300 MG
     Dates: start: 20110818, end: 20111019
  4. ATORVASTATIN [Concomitant]
     Indication: HYPERTENSION
     Dosage: 10 MG
  5. CANDESARTAN CILEXETIL [Concomitant]
     Indication: HYPERTENSION
     Dosage: 32 MG
  6. CARDIZEM CD [Concomitant]
     Indication: HYPERTENSION
     Dosage: 360 MG

REACTIONS (2)
  - DYSPNOEA [None]
  - PAIN [None]
